FAERS Safety Report 6844830-5 (Version None)
Quarter: 2010Q3

REPORT INFORMATION
  Report Type: 
  Country: None (occurrence: None)
  Receive Date: 20100713
  Receipt Date: 20100210
  Transmission Date: 20110219
  Serious: Yes (Hospitalization)
  Sender: FDA-Public Use
  Company Number: 1-16549137

PATIENT
  Age: 79 Year
  Sex: Female
  Weight: 54.4316 kg

DRUGS (18)
  1. QUALAQUIN [Suspect]
     Indication: MUSCLE SPASMS
     Dosage: ORAL
     Route: 048
     Dates: start: 20040124, end: 20060101
  2. QUININE SULFATE [Suspect]
     Indication: MUSCLE SPASMS
     Dosage: ORAL
     Route: 048
     Dates: start: 20040114, end: 20060101
  3. COUMADIN [Concomitant]
  4. TOPROL-XL [Concomitant]
  5. ZOCOR [Concomitant]
  6. LASIX [Concomitant]
  7. POTASSIUM CHLORIDE [Concomitant]
  8. RESTASIS [Concomitant]
  9. ACETAMINOPHEN [Concomitant]
  10. CARDIZEM [Concomitant]
  11. DIGOXIN [Concomitant]
  12. SINGULAIR [Concomitant]
  13. PULIMCORT RESPULES [Concomitant]
  14. PERFOROMIST [Concomitant]
  15. XOPENEX [Concomitant]
  16. TESSALON [Concomitant]
  17. NEXIUM [Concomitant]
  18. CENTRUM SILVER [Concomitant]

REACTIONS (13)
  - ANAEMIA [None]
  - ATELECTASIS [None]
  - ATRIAL FIBRILLATION [None]
  - AUTOIMMUNE THROMBOCYTOPENIA [None]
  - CANDIDIASIS [None]
  - CHILLS [None]
  - DIARRHOEA [None]
  - NAUSEA [None]
  - PLEURAL EFFUSION [None]
  - PNEUMONIA [None]
  - PNEUMONITIS [None]
  - PULMONARY OEDEMA [None]
  - URINARY TRACT INFECTION FUNGAL [None]
